FAERS Safety Report 6179739-6 (Version None)
Quarter: 2009Q2

REPORT INFORMATION
  Report Type: 
  Country: None (occurrence: None)
  Receive Date: 20090505
  Receipt Date: 20090429
  Transmission Date: 20091009
  Serious: Yes (Hospitalization, Other)
  Sender: FDA-Public Use
  Company Number: FR-ROXANE LABORATORIES, INC.-2009-RO-00422RO

PATIENT
  Age: 5 Year
  Sex: Male

DRUGS (5)
  1. LEVETIRACETAM [Suspect]
     Indication: PARTIAL SEIZURES
  2. OXCARBAZEPINE [Suspect]
     Indication: PARTIAL SEIZURES
  3. LAMOTRIGINE [Suspect]
     Indication: PARTIAL SEIZURES
  4. VALPROATE SODIUM [Suspect]
     Indication: PARTIAL SEIZURES
  5. CLOBAZAM [Concomitant]
     Indication: PARTIAL SEIZURES

REACTIONS (3)
  - DEPRESSION [None]
  - DRUG INEFFECTIVE [None]
  - RASH [None]
